FAERS Safety Report 20942389 (Version 1)
Quarter: 2022Q2

REPORT INFORMATION
  Report Type: Spontaneous
  Country: US (occurrence: US)
  Receive Date: 20220610
  Receipt Date: 20220610
  Transmission Date: 20220720
  Serious: Yes (Other)
  Sender: FDA-Public Use
  Company Number: US-CELGENE-USA-20220203827

PATIENT
  Age: 66 Year
  Sex: Female

DRUGS (5)
  1. REVLIMID [Suspect]
     Active Substance: LENALIDOMIDE
     Indication: Myelodysplastic syndrome
     Dosage: 10 MILLIGRAM
     Route: 048
     Dates: start: 201806
  2. REVLIMID [Suspect]
     Active Substance: LENALIDOMIDE
     Dosage: 7.5-2.5 MG
     Route: 048
     Dates: start: 201807
  3. REVLIMID [Suspect]
     Active Substance: LENALIDOMIDE
     Dosage: 7.5-2.5 MG
     Route: 048
     Dates: start: 201808
  4. REVLIMID [Suspect]
     Active Substance: LENALIDOMIDE
     Dosage: 5 - 2.5 MG
     Route: 048
     Dates: start: 202002
  5. REVLIMID [Suspect]
     Active Substance: LENALIDOMIDE
     Dosage: 5 MILLIGRAM
     Route: 048
     Dates: start: 202005

REACTIONS (3)
  - Dehydration [Unknown]
  - Clostridium difficile infection [Unknown]
  - Glucose tolerance impaired [Unknown]

NARRATIVE: CASE EVENT DATE: 20220203
